FAERS Safety Report 5932139-3 (Version None)
Quarter: 2008Q4

REPORT INFORMATION
  Report Type: 
  Country: None (occurrence: None)
  Receive Date: 20081027
  Receipt Date: 20081027
  Transmission Date: 20090506
  Serious: Yes (Other)
  Sender: FDA-Public Use
  Company Number: None

PATIENT
  Age: 62 Year
  Sex: Female
  Weight: 90.2658 kg

DRUGS (3)
  1. RAPTIVA [Suspect]
     Indication: PSORIASIS
     Dates: start: 20070415, end: 20071101
  2. TRIACINOLONE ACETON [Concomitant]
  3. ATARAX [Concomitant]

REACTIONS (10)
  - ALOPECIA [None]
  - CONDITION AGGRAVATED [None]
  - ERYTHEMA [None]
  - NAIL DISCOLOURATION [None]
  - NAIL DISORDER [None]
  - ONYCHOMADESIS [None]
  - PRURITUS [None]
  - RASH [None]
  - SKIN EXFOLIATION [None]
  - SPLINTER HAEMORRHAGES [None]
